FAERS Safety Report 18107836 (Version 1)
Quarter: 2020Q3

REPORT INFORMATION
  Report Type: Spontaneous
  Country: US (occurrence: US)
  Receive Date: 20200803
  Receipt Date: 20200803
  Transmission Date: 20201103
  Serious: Yes (Other)
  Sender: FDA-Public Use
  Company Number: US-JAZZ-2020-US-009490

PATIENT

DRUGS (1)
  1. VYXEOS [Suspect]
     Active Substance: CYTARABINE\DAUNORUBICIN
     Indication: ACUTE MYELOID LEUKAEMIA

REACTIONS (20)
  - Cellulitis [Unknown]
  - Haemorrhoidal haemorrhage [Unknown]
  - Colitis [Unknown]
  - Respiratory failure [Unknown]
  - Sinusitis [Unknown]
  - Enteritis [Unknown]
  - Pharyngeal haemorrhage [Unknown]
  - Haemorrhage [Unknown]
  - Vaginal haemorrhage [Unknown]
  - Pneumonia [Unknown]
  - Acute kidney injury [Unknown]
  - Haemorrhage urinary tract [Unknown]
  - Febrile neutropenia [Unknown]
  - Ejection fraction decreased [Unknown]
  - Tumour lysis syndrome [Unknown]
  - Conjunctival haemorrhage [Unknown]
  - Gastrointestinal haemorrhage [Unknown]
  - Bacteraemia [Unknown]
  - Epistaxis [Unknown]
  - Genitourinary tract infection [Unknown]
